FAERS Safety Report 10175144 (Version 1)
Quarter: 2014Q2

REPORT INFORMATION
  Report Type: Report from Study
  Country: AR (occurrence: AR)
  Receive Date: 20140515
  Receipt Date: 20140515
  Transmission Date: 20141212
  Serious: Yes (Other)
  Sender: FDA-Public Use
  Company Number: AR-US-EMD SERONO, INC.-7291188

PATIENT
  Sex: Female

DRUGS (2)
  1. SAIZEN [Suspect]
     Indication: PRODUCT USED FOR UNKNOWN INDICATION
     Dates: start: 20080517, end: 20140210
  2. SAIZEN [Suspect]
     Dates: start: 20140210

REACTIONS (2)
  - Diabetes mellitus [Recovering/Resolving]
  - Hypothyroidism [Unknown]
